FAERS Safety Report 11440455 (Version 1)
Quarter: 2015Q3

REPORT INFORMATION
  Report Type: Spontaneous
  Country: US (occurrence: None)
  Receive Date: 20150831
  Receipt Date: 20150831
  Transmission Date: 20151125
  Serious: Yes (Disabling)
  Sender: FDA-Public Use
  Company Number: None

PATIENT
  Age: 26 Year
  Sex: Male
  Weight: 98.88 kg

DRUGS (1)
  1. FINASTERIDE. [Suspect]
     Active Substance: FINASTERIDE
     Indication: ANDROGENETIC ALOPECIA
     Route: 048
     Dates: start: 20150709, end: 20150716

REACTIONS (4)
  - Loss of libido [None]
  - Anhedonia [None]
  - Hypogonadism [None]
  - Feeling abnormal [None]

NARRATIVE: CASE EVENT DATE: 20150716
